FAERS Safety Report 6703079-7 (Version None)
Quarter: 2010Q2

REPORT INFORMATION
  Report Type: 
  Country: None (occurrence: None)
  Receive Date: 20100427
  Receipt Date: 20100420
  Transmission Date: 20101027
  Serious: Yes (Death)
  Sender: FDA-Public Use
  Company Number: 2010SP022902

PATIENT
  Age: 57 Year
  Sex: Male

DRUGS (2)
  1. INTERFERON ALFA-2B RECOMBINANT (INTERFERON ALFA-2B) [Suspect]
     Indication: HEPATITIS C
     Dosage: 3 MIU;TIW;SC
     Route: 058
     Dates: start: 19950801, end: 19960101
  2. RIBAVIRIN [Suspect]
     Indication: HEPATITIS C
     Dosage: 1 GM;QD;PO
     Route: 048
     Dates: start: 19950801, end: 19960101

REACTIONS (7)
  - DISTURBANCE IN ATTENTION [None]
  - EXTRAPYRAMIDAL DISORDER [None]
  - FATIGUE [None]
  - HEPATIC ENCEPHALOPATHY [None]
  - LETHARGY [None]
  - PARKINSON'S DISEASE [None]
  - POOR QUALITY SLEEP [None]
